FAERS Safety Report 17102555 (Version 8)
Quarter: 2020Q2

REPORT INFORMATION
  Report Type: Report from Study
  Country: None (occurrence: CA)
  Receive Date: 20191202
  Receipt Date: 20200401
  Transmission Date: 20200713
  Serious: Yes (Hospitalization)
  Sender: FDA-Public Use
  Company Number: CA-ABBVIE-19P-028-3177821-00

PATIENT
  Age: 64 Year
  Sex: Male
  Weight: 110 kg

DRUGS (5)
  1. SORIATANE [Concomitant]
     Active Substance: ACITRETIN
     Indication: PRODUCT USED FOR UNKNOWN INDICATION
  2. SKYRIZI [Suspect]
     Active Substance: RISANKIZUMAB-RZAA
     Route: 058
  3. CYCLOSPORINE SORIATA [Concomitant]
     Indication: PRODUCT USED FOR UNKNOWN INDICATION
     Route: 065
     Dates: end: 201912
  4. SKYRIZI [Suspect]
     Active Substance: RISANKIZUMAB-RZAA
     Indication: PSORIASIS
     Route: 058
     Dates: start: 20191031, end: 20191128
  5. CYCLOSPORINE SORIATA [Concomitant]
     Route: 065
     Dates: start: 201912

REACTIONS (21)
  - Groin infection [Unknown]
  - Dermatitis acneiform [Not Recovered/Not Resolved]
  - Exfoliative rash [Not Recovered/Not Resolved]
  - Throat tightness [Recovered/Resolved]
  - Feeling hot [Unknown]
  - Heart rate increased [Unknown]
  - Pharyngeal oedema [Recovered/Resolved]
  - Drug ineffective [Not Recovered/Not Resolved]
  - Tremor [Recovered/Resolved]
  - Skin ulcer [Not Recovered/Not Resolved]
  - Hypertension [Unknown]
  - Skin atrophy [Unknown]
  - Localised infection [Recovered/Resolved]
  - Pyrexia [Unknown]
  - Rash macular [Not Recovered/Not Resolved]
  - Facial pain [Unknown]
  - Pruritus [Unknown]
  - Psoriasis [Recovering/Resolving]
  - Chills [Recovered/Resolved]
  - Rash pruritic [Not Recovered/Not Resolved]
  - Blister [Unknown]

NARRATIVE: CASE EVENT DATE: 2019
